FAERS Safety Report 9179472 (Version 2)
Quarter: 2013Q3

REPORT INFORMATION
  Report Type: Report from Study
  Country: JP (occurrence: JP)
  Receive Date: 20121029
  Receipt Date: 20130724
  Transmission Date: 20140515
  Serious: Yes (Other)
  Sender: FDA-Public Use
  Company Number: JP-SHIRE-ALL1-2012-05191

PATIENT
  Age: 52 Year
  Sex: Male

DRUGS (19)
  1. 405 (LANTHANUM CARBONATE) [Suspect]
     Indication: HYPERPHOSPHATAEMIA
     Dosage: 1500 MG, UNKNOWN (TOTAL DAILY DOSE)
     Route: 048
     Dates: start: 20091113
  2. 405 (LANTHANUM CARBONATE) [Suspect]
     Dosage: 750 MG, OTHER (IMMEDIATLY AFTER MEALS)
     Route: 048
     Dates: start: 20090612, end: 20091112
  3. RENAGEL                            /01459902/ [Concomitant]
     Indication: HYPERPHOSPHATAEMIA
     Dosage: 4.5 G, UNKNOWN
     Route: 048
  4. OXAROL [Concomitant]
     Indication: PRODUCT USED FOR UNKNOWN INDICATION
     Dosage: 15 ?G, 1X/WEEK
     Route: 042
  5. OXAROL [Concomitant]
     Dosage: 90 ?G, 1X/WEEK
     Route: 042
     Dates: end: 20101106
  6. OXAROL [Concomitant]
     Dosage: 60 ?G, 1X/WEEK
     Route: 042
     Dates: start: 20101108
  7. REGPARA [Concomitant]
     Indication: HYPERPARATHYROIDISM SECONDARY
     Dosage: 50 MG, UNKNOWN
     Route: 048
  8. REGPARA [Concomitant]
     Dosage: 100 MG, UNKNOWN
     Route: 048
     Dates: start: 20120203
  9. AMISALIN                           /00039602/ [Concomitant]
     Indication: PRODUCT USED FOR UNKNOWN INDICATION
     Dosage: 475 MG, UNKNOWN
     Route: 048
  10. DIGITOXIN [Concomitant]
     Indication: PRODUCT USED FOR UNKNOWN INDICATION
     Dosage: 0.05 MG, UNKNOWN
     Route: 048
  11. BAYASPIRIN [Concomitant]
     Indication: PRODUCT USED FOR UNKNOWN INDICATION
     Dosage: 100 MG, UNKNOWN
     Route: 048
  12. RYTHMODAN                          /00271801/ [Concomitant]
     Indication: PRODUCT USED FOR UNKNOWN INDICATION
     Dosage: 200 MG, UNKNOWN
     Route: 048
  13. ADALAT L [Concomitant]
     Indication: PRODUCT USED FOR UNKNOWN INDICATION
     Dosage: 40 MG, UNKNOWN
     Route: 048
  14. ZYLORIC [Concomitant]
     Indication: PRODUCT USED FOR UNKNOWN INDICATION
     Dosage: 100 MG, UNKNOWN
     Route: 048
  15. GASTER D [Concomitant]
     Indication: PRODUCT USED FOR UNKNOWN INDICATION
     Dosage: 10 MG, UNKNOWN
     Route: 048
  16. NESP [Concomitant]
     Indication: PRODUCT USED FOR UNKNOWN INDICATION
     Dosage: 30 ?G, UNKNOWN
     Route: 042
  17. DIOVAN [Concomitant]
     Indication: PRODUCT USED FOR UNKNOWN INDICATION
     Dosage: 80 MG, UNKNOWN
     Route: 048
     Dates: end: 20100611
  18. DIOVAN [Concomitant]
     Dosage: 40 MG, UNKNOWN
     Route: 048
     Dates: start: 20120330
  19. LOSARTAN                           /01121602/ [Concomitant]
     Indication: HYPERTENSION
     Dosage: 25 MG, 1X/DAY:QD
     Route: 048
     Dates: start: 20110611, end: 20120330

REACTIONS (2)
  - Gastrointestinal haemorrhage [Recovered/Resolved]
  - Atrial fibrillation [Unknown]
